FAERS Safety Report 15244503 (Version 1)
Quarter: 2018Q3

REPORT INFORMATION
  Report Type: Spontaneous
  Country: RO (occurrence: RO)
  Receive Date: 20180806
  Receipt Date: 20180806
  Transmission Date: 20181010
  Serious: Yes (Death)
  Sender: FDA-Public Use
  Company Number: RO-PFIZER INC-2018310466

PATIENT
  Age: 72 Year
  Sex: Male
  Weight: 61 kg

DRUGS (7)
  1. AXITINIB [Suspect]
     Active Substance: AXITINIB
     Indication: METASTATIC RENAL CELL CARCINOMA
     Dosage: 10 MG, DAILY
     Dates: start: 201710, end: 20180717
  2. TENAXUM [Concomitant]
     Active Substance: RILMENIDINE
     Dosage: UNK UNK, 1X/DAY, IN THE EVENING
  3. PREDNISON [Concomitant]
     Active Substance: PREDNISONE
     Dosage: 5 MG, 1X/DAY, IN THE MORNING
  4. OSTEOCARE [Concomitant]
     Active Substance: CALCIUM\CHOLECALCIFEROL\MAGNESIUM\ZINC
     Dosage: UNK UNK, 1X/DAY, IN THE MORNING
  5. EUTHYROX [Concomitant]
     Active Substance: LEVOTHYROXINE SODIUM
     Dosage: 100 UG, 1X/DAY, IN THE MORNING
  6. ALPHA D3 [Concomitant]
     Active Substance: ALFACALCIDOL
     Dosage: 0.5 UNK, 1X/DAY IN THE MORNING
  7. EXFORGE [Concomitant]
     Active Substance: AMLODIPINE BESYLATE\VALSARTAN
     Dosage: UNK UNK, 1X/DAY, IN THE MORNING

REACTIONS (1)
  - Death [Fatal]

NARRATIVE: CASE EVENT DATE: 20180731
